FAERS Safety Report 14061876 (Version 1)
Quarter: 2017Q4

REPORT INFORMATION
  Report Type: Spontaneous
  Country: US (occurrence: US)
  Receive Date: 20171009
  Receipt Date: 20171009
  Transmission Date: 20180321
  Serious: No
  Sender: FDA-Public Use
  Company Number: US-TEVA-731430USA

PATIENT
  Age: 52 Year
  Sex: Female

DRUGS (2)
  1. TEMAZEPAM. [Suspect]
     Active Substance: TEMAZEPAM
     Indication: SLEEP DISORDER
     Route: 065
     Dates: start: 201606
  2. TEMAZEPAM. [Suspect]
     Active Substance: TEMAZEPAM
     Indication: NIGHTMARE
     Route: 065
     Dates: start: 2014

REACTIONS (3)
  - Loss of personal independence in daily activities [Recovered/Resolved]
  - Fatigue [Recovered/Resolved]
  - Drug effect increased [Unknown]

NARRATIVE: CASE EVENT DATE: 20170113
